FAERS Safety Report 21223482 (Version 1)
Quarter: 2022Q3

REPORT INFORMATION
  Report Type: Spontaneous
  Country: CA (occurrence: CA)
  Receive Date: 20220817
  Receipt Date: 20220817
  Transmission Date: 20221027
  Serious: Yes (Death, Other)
  Sender: FDA-Public Use
  Company Number: CA-BAXTER-2022BAX017140

PATIENT
  Age: 66 Year
  Sex: Male

DRUGS (8)
  1. EXTRANEAL [Suspect]
     Active Substance: CALCIUM CHLORIDE\ICODEXTRIN\MAGNESIUM CHLORIDE\SODIUM CHLORIDE\SODIUM LACTATE
     Indication: End stage renal disease
     Dosage: 2.0 LITERS, 1 EVERY 1 DAYS, DOSAGE FORM: SOLUTION DIALYSIS
     Route: 033
  2. EXTRANEAL [Suspect]
     Active Substance: CALCIUM CHLORIDE\ICODEXTRIN\MAGNESIUM CHLORIDE\SODIUM CHLORIDE\SODIUM LACTATE
     Dosage: 2.0 LITERS, 1 EVERY 1 DAYS, DOSAGE FORM: SOLUTION DIALYSIS
     Route: 033
  3. CALCIUM CHLORIDE\DEXTROSE\MAGNESIUM CHLORIDE\SODIUM CHLORIDE\SODIUM LA [Suspect]
     Active Substance: CALCIUM CHLORIDE\DEXTROSE\MAGNESIUM CHLORIDE\SODIUM CHLORIDE\SODIUM LACTATE
     Indication: End stage renal disease
     Dosage: 2.0 LITERS, 3 EVERY 1 DAYS, DOSAGE FORM: SOLUTION DIALYSIS, BALANCE 1.5% GLUCOSE, 1.25 MMOL/L CALCIU
     Route: 033
  4. CALCIUM CHLORIDE\DEXTROSE\MAGNESIUM CHLORIDE\SODIUM CHLORIDE\SODIUM LA [Suspect]
     Active Substance: CALCIUM CHLORIDE\DEXTROSE\MAGNESIUM CHLORIDE\SODIUM CHLORIDE\SODIUM LACTATE
     Dosage: 2.0 LITERS, 3 EVERY 1 DAYS, DOSAGE FORM: SOLUTION DIALYSIS, BALANCE 1.5% GLUCOSE, 1.25 MMOL/L CALCIU
     Route: 033
  5. CALCIUM CHLORIDE\DEXTROSE\MAGNESIUM CHLORIDE\SODIUM CHLORIDE\SODIUM LA [Suspect]
     Active Substance: CALCIUM CHLORIDE\DEXTROSE\MAGNESIUM CHLORIDE\SODIUM CHLORIDE\SODIUM LACTATE
     Indication: End stage renal disease
     Dosage: 2.0 LITERS, 1 EVERY 1 DAYS, DOSAGE FORM: SOLUTION DIALYSIS, BALANCE 2.3% GLUCOSE, 1.25MMOL/L CALCIUM
     Route: 033
  6. CALCIUM CHLORIDE\DEXTROSE\MAGNESIUM CHLORIDE\SODIUM CHLORIDE\SODIUM LA [Suspect]
     Active Substance: CALCIUM CHLORIDE\DEXTROSE\MAGNESIUM CHLORIDE\SODIUM CHLORIDE\SODIUM LACTATE
     Dosage: 5.0 LITERS, 2 EVERY 1 DAYS, DOSAGE FORM: SOLUTION DIALYSIS, BALANCE 2.3% GLUCOSE, 1.25MMOL/L CALCIUM
     Route: 033
  7. CALCIUM CHLORIDE\DEXTROSE\MAGNESIUM CHLORIDE\SODIUM CHLORIDE\SODIUM LA [Suspect]
     Active Substance: CALCIUM CHLORIDE\DEXTROSE\MAGNESIUM CHLORIDE\SODIUM CHLORIDE\SODIUM LACTATE
     Dosage: 5.0 LITERS, 2 EVERY 1 DAYS, DOSAGE FORM: SOLUTION DIALYSIS, BALANCE 2.3% GLUCOSE, 1.25MMOL/L CALCIUM
     Route: 033
  8. CALCIUM CHLORIDE\DEXTROSE\MAGNESIUM CHLORIDE\SODIUM CHLORIDE\SODIUM LA [Suspect]
     Active Substance: CALCIUM CHLORIDE\DEXTROSE\MAGNESIUM CHLORIDE\SODIUM CHLORIDE\SODIUM LACTATE
     Dosage: 2.0 LITERS, 1 EVERY 1 DAYS, DOSAGE FORM: SOLUTION DIALYSIS, BALANCE 2.3% GLUCOSE, 1.25MMOL/L CALCIUM
     Route: 033

REACTIONS (4)
  - Blood lactic acid increased [Fatal]
  - Culture negative [Fatal]
  - Intestinal obstruction [Fatal]
  - Peritonitis [Fatal]
